FAERS Safety Report 15974293 (Version 1)
Quarter: 2019Q1

REPORT INFORMATION
  Report Type: Spontaneous
  Country: CZ (occurrence: CZ)
  Receive Date: 20190218
  Receipt Date: 20190218
  Transmission Date: 20190418
  Serious: Yes (Other)
  Sender: FDA-Public Use
  Company Number: CZ-BEH-2019099383

PATIENT
  Age: 38 Year
  Sex: Female

DRUGS (1)
  1. HUMAN IMMUNOGLOBULIN IV (INN) [Suspect]
     Active Substance: HUMAN IMMUNOGLOBULIN G
     Indication: NEONATAL ALLOIMMUNE THROMBOCYTOPENIA
     Dosage: 1000 MG/KG, QW
     Route: 042

REACTIONS (1)
  - Foetal death [Unknown]
